FAERS Safety Report 7811962-4 (Version None)
Quarter: 2011Q4

REPORT INFORMATION
  Report Type: 
  Country: None (occurrence: None)
  Receive Date: 20111013
  Receipt Date: 20110930
  Transmission Date: 20120403
  Serious: Yes (Other)
  Sender: FDA-Public Use
  Company Number: PHEH2011US05670

PATIENT
  Sex: Male

DRUGS (1)
  1. LOTREL [Suspect]
     Dosage: 1 DF, QD
     Dates: start: 20110601

REACTIONS (6)
  - PNEUMONIA [None]
  - BRONCHITIS [None]
  - ARTHRALGIA [None]
  - INFLUENZA LIKE ILLNESS [None]
  - ABDOMINAL DISCOMFORT [None]
  - FLUID RETENTION [None]
